FAERS Safety Report 19519201 (Version 1)
Quarter: 2021Q3

REPORT INFORMATION
  Report Type: Spontaneous
  Country: US (occurrence: US)
  Receive Date: 20210712
  Receipt Date: 20210712
  Transmission Date: 20211014
  Serious: Yes (Other)
  Sender: FDA-Public Use
  Company Number: US-GLAXOSMITHKLINE-US2021GSK147543

PATIENT
  Sex: Female

DRUGS (5)
  1. RANITIDINE HYDROCHLORIDE. [Suspect]
     Active Substance: RANITIDINE HYDROCHLORIDE
     Indication: CHRONIC GASTRITIS
     Dosage: UNK
     Route: 065
     Dates: start: 200509, end: 201907
  2. ZANTAC [Suspect]
     Active Substance: RANITIDINE HYDROCHLORIDE
     Indication: CHRONIC GASTRITIS
     Dosage: UNK
     Route: 065
     Dates: start: 200509, end: 201907
  3. RANITIDINE CAPSULE [Suspect]
     Active Substance: RANITIDINE
     Indication: CHRONIC GASTRITIS
     Dosage: UNK
     Route: 065
     Dates: start: 200509, end: 201907
  4. RANITIDINE. [Suspect]
     Active Substance: RANITIDINE
     Indication: CHRONIC GASTRITIS
     Dosage: UNK
     Route: 065
     Dates: start: 200509, end: 201907
  5. ZANTAC [Suspect]
     Active Substance: RANITIDINE HYDROCHLORIDE
     Indication: CHRONIC GASTRITIS
     Dosage: UNK
     Route: 065
     Dates: start: 200509, end: 201907

REACTIONS (1)
  - Breast cancer [Unknown]
